FAERS Safety Report 11649367 (Version 1)
Quarter: 2015Q4

REPORT INFORMATION
  Report Type: Spontaneous
  Country: US (occurrence: US)
  Receive Date: 20151021
  Receipt Date: 20151021
  Transmission Date: 20160304
  Serious: No
  Sender: FDA-Public Use
  Company Number: US-TARO-2015TAR00507

PATIENT
  Sex: Male
  Weight: 74.83 kg

DRUGS (1)
  1. PHENYTOIN SODIUM EXTENDED [Suspect]
     Active Substance: PHENYTOIN SODIUM
     Indication: GENERALISED TONIC-CLONIC SEIZURE
     Dosage: 300 MG, 1X/DAY
     Route: 048
     Dates: start: 2005

REACTIONS (1)
  - Barbiturates positive [Not Recovered/Not Resolved]

NARRATIVE: CASE EVENT DATE: 2006
